FAERS Safety Report 9597690 (Version 1)
Quarter: 2013Q4

REPORT INFORMATION
  Report Type: Spontaneous
  Country: US (occurrence: US)
  Receive Date: 20131004
  Receipt Date: 20131004
  Transmission Date: 20140711
  Serious: No
  Sender: FDA-Public Use
  Company Number: US-AMGEN-USASP2013020059

PATIENT
  Age: 59 Year
  Sex: Female
  Weight: 81.63 kg

DRUGS (10)
  1. ENBREL [Suspect]
     Indication: PRODUCT USED FOR UNKNOWN INDICATION
     Dosage: 50 MG, QWK
     Route: 058
     Dates: start: 20120615, end: 20130317
  2. SYNTHROID [Concomitant]
     Dosage: 150 MUG, UNK
  3. METHOTREXATE [Concomitant]
     Dosage: 2.5 MG, UNK
  4. MELOXICAM [Concomitant]
     Dosage: 7.5 MG, UNK
  5. VITAMIN E                          /00110501/ [Concomitant]
     Dosage: 100 UNIT, UNK
  6. MULTIVITAMINS, PLAIN [Concomitant]
     Dosage: UNK
  7. CALCIUM +D                         /00944201/ [Concomitant]
     Dosage: UNK
  8. FOLIC ACID [Concomitant]
  9. MAGNESIUM [Concomitant]
     Dosage: 300 MG, UNK
  10. DOXYCYCLINE [Concomitant]
     Dosage: 75 MG, UNK
     Dates: end: 20130323

REACTIONS (2)
  - Oropharyngeal pain [Unknown]
  - Drug ineffective [Unknown]
